FAERS Safety Report 18222032 (Version 2)
Quarter: 2020Q4

REPORT INFORMATION
  Report Type: Spontaneous
  Country: US (occurrence: US)
  Receive Date: 20200902
  Receipt Date: 20201102
  Transmission Date: 20210113
  Serious: Yes (Hospitalization)
  Sender: FDA-Public Use
  Company Number: US-GLOBAL BLOOD THERAPEUTICS INC-US-GBT-20-02428

PATIENT
  Age: 61 Year
  Sex: Female

DRUGS (3)
  1. ENDARI [Concomitant]
     Active Substance: GLUTAMINE
     Indication: SICKLE CELL DISEASE
  2. HYDROXYUERA [Concomitant]
     Indication: SICKLE CELL DISEASE
  3. OXBRYTA [Suspect]
     Active Substance: VOXELOTOR
     Indication: SICKLE CELL DISEASE
     Route: 048
     Dates: start: 20200603

REACTIONS (4)
  - Staphylococcal bacteraemia [Not Recovered/Not Resolved]
  - Product dose omission issue [Unknown]
  - Sickle cell anaemia with crisis [Recovered/Resolved]
  - Off label use [Unknown]

NARRATIVE: CASE EVENT DATE: 2020
